FAERS Safety Report 7291730-5 (Version None)
Quarter: 2011Q1

REPORT INFORMATION
  Report Type: 
  Country: None (occurrence: None)
  Receive Date: 20110209
  Receipt Date: 20110209
  Transmission Date: 20110831
  Serious: Yes (Hospitalization)
  Sender: FDA-Public Use
  Company Number: None

PATIENT
  Sex: Male
  Weight: 66.2252 kg

DRUGS (2)
  1. PROMETHAZINE HCL AND CODEINE PHOSPHATE [Suspect]
     Indication: NASOPHARYNGITIS
     Dosage: 1 TEASPOON EVERY 4-6 HRS PO
     Route: 048
     Dates: start: 20110203, end: 20110207
  2. PROMETHAZINE HCL AND CODEINE PHOSPHATE [Suspect]
     Indication: COUGH
     Dosage: 1 TEASPOON EVERY 4-6 HRS PO
     Route: 048
     Dates: start: 20110203, end: 20110207

REACTIONS (6)
  - FATIGUE [None]
  - PARAESTHESIA [None]
  - CONFUSIONAL STATE [None]
  - NEUROLEPTIC MALIGNANT SYNDROME [None]
  - HYPOVENTILATION [None]
  - ANXIETY [None]
